FAERS Safety Report 10100641 (Version 1)
Quarter: 2014Q2

REPORT INFORMATION
  Report Type: Spontaneous
  Country: US (occurrence: US)
  Receive Date: 20140423
  Receipt Date: 20140423
  Transmission Date: 20141212
  Serious: Yes (Other)
  Sender: FDA-Public Use
  Company Number: US-FRI-1000066684

PATIENT
  Age: 48 Year
  Sex: Female

DRUGS (1)
  1. LINZESS [Suspect]
     Dates: start: 20140416, end: 20140417

REACTIONS (1)
  - Rectal haemorrhage [Unknown]
